FAERS Safety Report 7345371-1 (Version None)
Quarter: 2011Q1

REPORT INFORMATION
  Report Type: 
  Country: None (occurrence: None)
  Receive Date: 20110310
  Receipt Date: 20110307
  Transmission Date: 20110831
  Serious: Yes (Death, Hospitalization)
  Sender: FDA-Public Use
  Company Number: PHHY2011US11241

PATIENT
  Sex: Male

DRUGS (5)
  1. TRAMADOL [Concomitant]
     Dosage: UNK
     Route: 048
  2. OMEPRAZOLE [Concomitant]
     Dosage: 20 MG,DAILY
     Route: 048
  3. EXJADE [Suspect]
     Dosage: 2000 MG, QD
     Route: 048
  4. ALDACTONE [Concomitant]
     Dosage: 12.5 MG, DAILY
     Route: 048
  5. ASPIRIN [Concomitant]
     Dosage: 81 MG, DAILY
     Route: 048

REACTIONS (5)
  - ABDOMINAL DISTENSION [None]
  - DYSPNOEA [None]
  - ATRIAL FIBRILLATION [None]
  - CARDIAC TAMPONADE [None]
  - PERICARDIAL EFFUSION [None]
